FAERS Safety Report 7958839-1 (Version None)
Quarter: 2011Q4

REPORT INFORMATION
  Report Type: 
  Country: None (occurrence: None)
  Receive Date: 20111206
  Receipt Date: 20111130
  Transmission Date: 20120403
  Serious: Yes (Other)
  Sender: FDA-Public Use
  Company Number: US-AMGEN-USASP2011063988

PATIENT
  Sex: Male

DRUGS (6)
  1. PHENERGAN [Concomitant]
  2. EPOGEN [Suspect]
  3. CLONIDINE [Concomitant]
  4. HEPARIN [Concomitant]
  5. HECTOROL [Concomitant]
  6. EPOGEN [Suspect]
     Indication: NEPHROGENIC ANAEMIA
     Dosage: 1000 IU, 3 TIMES/WK
     Route: 042
     Dates: start: 20110531

REACTIONS (1)
  - LUNG NEOPLASM MALIGNANT [None]
